FAERS Safety Report 4854746-1 (Version None)
Quarter: 2005Q4

REPORT INFORMATION
  Report Type: 
  Country: None (occurrence: None)
  Receive Date: 20051215
  Receipt Date: 20051213
  Transmission Date: 20060501
  Serious: Yes (Other)
  Sender: FDA-Public Use
  Company Number: US-GLAXOSMITHKLINE-A0585892A

PATIENT
  Age: 32 Year
  Sex: Female

DRUGS (5)
  1. BUPROPION [Suspect]
     Indication: BORDERLINE PERSONALITY DISORDER
     Dosage: 100MG PER DAY
     Route: 048
     Dates: start: 20040206, end: 20050101
  2. KLONOPIN [Concomitant]
  3. TOPAMAX [Concomitant]
  4. BENADRYL [Concomitant]
  5. SSRI [Concomitant]

REACTIONS (2)
  - ABORTION SPONTANEOUS [None]
  - DRUG EXPOSURE DURING PREGNANCY [None]
